FAERS Safety Report 4595749-4 (Version None)
Quarter: 2005Q1

REPORT INFORMATION
  Report Type: 
  Country: None (occurrence: None)
  Receive Date: 20050302
  Receipt Date: 20050223
  Transmission Date: 20050727
  Serious: Yes (Death, Hospitalization)
  Sender: FDA-Public Use
  Company Number: FR-BRISTOL-MYERS SQUIBB COMPANY-12876868

PATIENT
  Age: 28 Year
  Sex: Female

DRUGS (5)
  1. SUSTIVA [Suspect]
     Indication: HIV INFECTION
     Route: 048
     Dates: start: 20000501, end: 20041130
  2. COMBIVIR [Suspect]
     Indication: HIV INFECTION
     Route: 048
     Dates: start: 20000501, end: 20041130
  3. MYAMBUTOL [Suspect]
     Indication: TUBERCULOSIS
     Dates: start: 20041108
  4. RIFADIN [Suspect]
     Indication: TUBERCULOSIS
     Dates: start: 20041108
  5. RIMIFON [Suspect]
     Indication: TUBERCULOSIS
     Dates: start: 20041108

REACTIONS (7)
  - ANOREXIA [None]
  - ASTHENIA [None]
  - GENERAL PHYSICAL HEALTH DETERIORATION [None]
  - LACTIC ACIDOSIS [None]
  - SUDDEN DEATH [None]
  - TREATMENT NONCOMPLIANCE [None]
  - TUBERCULOSIS [None]
